FAERS Safety Report 24680787 (Version 2)
Quarter: 2025Q3

REPORT INFORMATION
  Report Type: Spontaneous
  Country: CA (occurrence: CA)
  Receive Date: 20241129
  Receipt Date: 20250809
  Transmission Date: 20251020
  Serious: Yes (Other)
  Sender: ALEXION PHARMACEUTICALS
  Company Number: CA-ASTRAZENECA-202411CAN016188CA

PATIENT
  Age: 29 Year
  Sex: Male
  Weight: 84 kg

DRUGS (16)
  1. SEROQUEL [Suspect]
     Active Substance: QUETIAPINE FUMARATE
     Route: 065
  2. INFLECTRA [Suspect]
     Active Substance: INFLIXIMAB-DYYB
     Indication: Crohn^s disease
  3. INFLECTRA [Suspect]
     Active Substance: INFLIXIMAB-DYYB
  4. INFLECTRA [Suspect]
     Active Substance: INFLIXIMAB-DYYB
  5. INFLECTRA [Suspect]
     Active Substance: INFLIXIMAB-DYYB
  6. INFLECTRA [Suspect]
     Active Substance: INFLIXIMAB-DYYB
  7. INFLECTRA [Suspect]
     Active Substance: INFLIXIMAB-DYYB
  8. INFLECTRA [Suspect]
     Active Substance: INFLIXIMAB-DYYB
  9. INFLECTRA [Suspect]
     Active Substance: INFLIXIMAB-DYYB
  10. INFLECTRA [Suspect]
     Active Substance: INFLIXIMAB-DYYB
  11. INFLECTRA [Suspect]
     Active Substance: INFLIXIMAB-DYYB
  12. INFLECTRA [Suspect]
     Active Substance: INFLIXIMAB-DYYB
  13. INFLECTRA [Suspect]
     Active Substance: INFLIXIMAB-DYYB
  14. INFLECTRA [Suspect]
     Active Substance: INFLIXIMAB-DYYB
  15. INFLECTRA [Suspect]
     Active Substance: INFLIXIMAB-DYYB
  16. MIDOMAFETAMINE [Suspect]
     Active Substance: MIDOMAFETAMINE
     Route: 065

REACTIONS (16)
  - Crohn^s disease [Not Recovered/Not Resolved]
  - Drug abuse [Unknown]
  - Drug level decreased [Unknown]
  - Initial insomnia [Recovered/Resolved]
  - Sleep paralysis [Recovered/Resolved]
  - Sleep terror [Recovered/Resolved]
  - Gastrooesophageal reflux disease [Unknown]
  - Influenza [Unknown]
  - Vertigo [Recovered/Resolved]
  - Amnesia [Recovered/Resolved]
  - Off label use [Unknown]
  - Off label use [Unknown]
  - Intentional product use issue [Recovered/Resolved]
  - Inappropriate schedule of product administration [Unknown]
  - Dissociative disorder [Unknown]
  - Intentional product misuse [Unknown]

NARRATIVE: CASE EVENT DATE: 20220311
